FAERS Safety Report 8199499-7 (Version None)
Quarter: 2012Q1

REPORT INFORMATION
  Report Type: 
  Country: None (occurrence: None)
  Receive Date: 20120309
  Receipt Date: 20120301
  Transmission Date: 20120608
  Serious: Yes (Hospitalization)
  Sender: FDA-Public Use
  Company Number: JP-AMGEN-JPNCT2012015221

PATIENT
  Age: 70 Year
  Sex: Female
  Weight: 41 kg

DRUGS (23)
  1. PANITUMUMAB [Suspect]
     Dosage: 6 MG/KG, Q2WK
     Route: 041
     Dates: start: 20110318, end: 20110318
  2. FLUOROURACIL [Concomitant]
     Route: 040
     Dates: start: 20110221, end: 20110513
  3. FLUOROURACIL [Concomitant]
     Route: 041
     Dates: start: 20110221, end: 20110513
  4. ZOFRAN [Concomitant]
     Dosage: UNK
     Route: 048
  5. LOCOID [Concomitant]
     Route: 062
  6. PANITUMUMAB [Suspect]
     Dosage: 6 MG/KG, Q2WK
     Route: 041
  7. LEVOLEUCOVORIN CALCIUM [Concomitant]
     Indication: COLORECTAL CANCER
     Route: 041
     Dates: start: 20101028, end: 20110124
  8. LEVOLEUCOVORIN CALCIUM [Concomitant]
     Route: 041
     Dates: start: 20110221, end: 20110513
  9. OXALIPLATIN [Concomitant]
     Indication: COLORECTAL CANCER
     Route: 041
     Dates: start: 20101028, end: 20110124
  10. PANITUMUMAB [Suspect]
     Dosage: 6 MG/KG, Q2WK
     Route: 041
     Dates: start: 20101125, end: 20101125
  11. FLUOROURACIL [Concomitant]
     Indication: COLORECTAL CANCER
     Route: 040
     Dates: start: 20101028, end: 20110124
  12. MAGNESIUM OXIDE [Concomitant]
     Dosage: UNK
     Route: 048
  13. PANITUMUMAB [Suspect]
     Dosage: 6 MG/KG, Q2WK
     Route: 041
     Dates: start: 20110124, end: 20110124
  14. PANITUMUMAB [Suspect]
     Dosage: 6 MG/KG, Q2WK
     Route: 041
     Dates: start: 20110414, end: 20110414
  15. ANTIHISTAMINES [Concomitant]
     Indication: PROPHYLAXIS
     Dosage: UNK
     Route: 065
  16. IRINOTECAN HCL [Concomitant]
     Indication: COLORECTAL CANCER
     Route: 041
     Dates: start: 20110221, end: 20110513
  17. HIRUDOID [Concomitant]
     Dosage: UNK
     Route: 062
  18. PANITUMUMAB [Suspect]
     Dosage: 6 MG/KG, Q2WK
     Route: 041
     Dates: start: 20101227, end: 20101227
  19. PANITUMUMAB [Suspect]
     Dosage: 6 MG/KG, Q2WK
     Route: 041
     Dates: start: 20110221, end: 20110221
  20. CORTICOSTEROIDS [Concomitant]
     Indication: PROPHYLAXIS
     Dosage: UNK
     Route: 065
  21. FLUOROURACIL [Concomitant]
     Route: 041
     Dates: start: 20101028, end: 20110124
  22. MOTILIUM [Concomitant]
     Dosage: UNK
     Route: 048
  23. MYSER [Concomitant]
     Route: 062

REACTIONS (3)
  - NEUTROPHIL COUNT DECREASED [None]
  - PRURITUS GENERALISED [None]
  - DRY SKIN [None]
